FAERS Safety Report 5921156-5 (Version None)
Quarter: 2008Q4

REPORT INFORMATION
  Report Type: 
  Country: None (occurrence: None)
  Receive Date: 20081016
  Receipt Date: 20081006
  Transmission Date: 20090506
  Serious: Yes (Death, Other)
  Sender: FDA-Public Use
  Company Number: US-ELI_LILLY_AND_COMPANY-US200810001411

PATIENT
  Age: 63 Year
  Sex: Female

DRUGS (3)
  1. ZYPREXA ZYDIS [Suspect]
     Indication: PSYCHOTIC DISORDER
     Dosage: 5 MG, UNK
     Route: 060
     Dates: start: 20080918
  2. AMBIEN [Concomitant]
     Dosage: 10 MG, UNK
     Dates: start: 20060101
  3. FLECTOR [Concomitant]
     Dosage: UNK, UNK
     Dates: start: 20080923

REACTIONS (1)
  - COMPLETED SUICIDE [None]
